FAERS Safety Report 15053221 (Version 13)
Quarter: 2019Q2

REPORT INFORMATION
  Report Type: Report from Study
  Country: US (occurrence: US)
  Receive Date: 20180622
  Receipt Date: 20190429
  Transmission Date: 20190711
  Serious: Yes (Death, Hospitalization, Other)
  Sender: FDA-Public Use
  Company Number: US-ACTELION-A-US2018-167381

PATIENT
  Age: 71 Year
  Sex: Female
  Weight: 78.91 kg

DRUGS (5)
  1. VELETRI [Suspect]
     Active Substance: EPOPROSTENOL
     Indication: PULMONARY HYPERTENSION
     Dosage: 25 NG/KG, PER MIN
     Route: 042
  2. SILDENAFIL. [Concomitant]
     Active Substance: SILDENAFIL
  3. VELETRI [Suspect]
     Active Substance: EPOPROSTENOL
     Dosage: 25 NG/KG, PER MIN
     Route: 042
  4. COUMADIN [Concomitant]
     Active Substance: WARFARIN SODIUM
  5. VELETRI [Suspect]
     Active Substance: EPOPROSTENOL
     Dosage: 29 NG/KG, PER MIN
     Route: 042

REACTIONS (24)
  - Hypotension [Unknown]
  - Chronic obstructive pulmonary disease [Unknown]
  - Dyspnoea exertional [Unknown]
  - Nervousness [Unknown]
  - Bacteraemia [Unknown]
  - Nasopharyngitis [Unknown]
  - Death [Fatal]
  - Diarrhoea [Unknown]
  - Device related infection [Unknown]
  - Pericardial effusion [Unknown]
  - Oedema peripheral [Unknown]
  - Tremor [Unknown]
  - Vomiting [Unknown]
  - Cardiac disorder [Unknown]
  - Cough [Unknown]
  - Hospice care [Unknown]
  - Breast cancer stage IV [Unknown]
  - Oxygen saturation decreased [Unknown]
  - Scleroderma [Unknown]
  - Dyspnoea [Unknown]
  - Pulmonary arterial hypertension [Unknown]
  - Pneumonia [Unknown]
  - Limb discomfort [Unknown]
  - Nasal congestion [Unknown]

NARRATIVE: CASE EVENT DATE: 20180724
